FAERS Safety Report 22099263 (Version 1)
Quarter: 2023Q1

REPORT INFORMATION
  Report Type: Spontaneous
  Country: GB (occurrence: GB)
  Receive Date: 20230315
  Receipt Date: 20230315
  Transmission Date: 20230418
  Serious: Yes (Life-Threatening, Hospitalization, Other)
  Sender: FDA-Public Use
  Company Number: GB-JNJFOC-20230333890

PATIENT
  Age: 50 Year
  Sex: Male

DRUGS (1)
  1. YONDELIS [Suspect]
     Active Substance: TRABECTEDIN
     Indication: Dedifferentiated liposarcoma
     Route: 042
     Dates: start: 2020

REACTIONS (7)
  - Dyspnoea [Not Recovered/Not Resolved]
  - Left ventricular dysfunction [Not Recovered/Not Resolved]
  - Neutropenic sepsis [Recovering/Resolving]
  - Acute kidney injury [Unknown]
  - Hyponatraemia [Unknown]
  - Hypervolaemia [Unknown]
  - Sinus tachycardia [Unknown]
